FAERS Safety Report 4837528-6 (Version None)
Quarter: 2005Q4

REPORT INFORMATION
  Report Type: 
  Country: None (occurrence: None)
  Receive Date: 20051123
  Receipt Date: 20051123
  Transmission Date: 20060501
  Serious: Yes (Hospitalization)
  Sender: FDA-Public Use
  Company Number: None

PATIENT
  Age: 75 Year
  Sex: Male
  Weight: 89.8 kg

DRUGS (12)
  1. WARFARIN [Suspect]
     Indication: MYOCARDIAL INFARCTION
     Dosage: ORAL
     Route: 048
  2. SIMVASTATIN [Concomitant]
  3. METOPROLOL TARTRATE [Concomitant]
  4. NITROGLYCERIN [Concomitant]
  5. ACETAMINOPHEN [Concomitant]
  6. GLYBURIDE AND METFORMIN HCL [Concomitant]
  7. AMIODARONE HCL [Concomitant]
  8. AMOXICILLIN 875/CLAV K [Concomitant]
  9. SELENIUM SULFIDE [Concomitant]
  10. COUMADIN [Concomitant]
  11. LISINOPRIL [Concomitant]
  12. GLUCOSE [Concomitant]

REACTIONS (1)
  - INTERNATIONAL NORMALISED RATIO INCREASED [None]
